FAERS Safety Report 17578877 (Version 2)
Quarter: 2020Q1

REPORT INFORMATION
  Report Type: Spontaneous
  Country: TH (occurrence: TH)
  Receive Date: 20200325
  Receipt Date: 20200331
  Transmission Date: 20200409
  Serious: Yes (Other)
  Sender: FDA-Public Use
  Company Number: TH-ROCHE-2570547

PATIENT
  Age: 48 Year
  Sex: Female

DRUGS (1)
  1. MYCOPHENOLATE MOFETIL. [Suspect]
     Active Substance: MYCOPHENOLATE MOFETIL
     Indication: NEUROMYELITIS OPTICA SPECTRUM DISORDER
     Route: 065
     Dates: start: 20191228

REACTIONS (6)
  - Asthenia [Unknown]
  - Intentional product use issue [Unknown]
  - Alopecia [Unknown]
  - Off label use [Unknown]
  - Treatment failure [Unknown]
  - Myelitis transverse [Unknown]
